FAERS Safety Report 9201683 (Version 2)
Quarter: 2013Q2

REPORT INFORMATION
  Report Type: Spontaneous
  Country: US (occurrence: US)
  Receive Date: 20130401
  Receipt Date: 20130426
  Transmission Date: 20140414
  Serious: No
  Sender: FDA-Public Use
  Company Number: US-PFIZER INC-2013099325

PATIENT
  Age: 66 Year
  Sex: Female
  Weight: 64.4 kg

DRUGS (4)
  1. ZOLOFT [Suspect]
     Indication: POST-TRAUMATIC STRESS DISORDER
     Dosage: 15 MG DAILY
     Dates: end: 201303
  2. ZOLOFT [Suspect]
     Indication: ANXIETY
  3. MICARDIS [Concomitant]
     Indication: HYPERTENSION
     Dosage: 80MG DAILY
  4. LANSOPRAZOLE [Concomitant]
     Indication: GASTROOESOPHAGEAL REFLUX DISEASE
     Dosage: UNK, DAILY

REACTIONS (3)
  - Post-traumatic stress disorder [Unknown]
  - Dizziness [Not Recovered/Not Resolved]
  - Irritability [Unknown]
